FAERS Safety Report 10521896 (Version 2)
Quarter: 2014Q4

REPORT INFORMATION
  Report Type: Spontaneous
  Country: GB (occurrence: None)
  Receive Date: 20141014
  Receipt Date: 20141105
  Transmission Date: 20150528
  Serious: Yes (Other)
  Sender: FDA-Public Use
  Company Number: GB-AIKEM-000734

PATIENT
  Age: 54 Year
  Sex: Female

DRUGS (2)
  1. QUETIAPINE (QUETIAPINE) [Suspect]
     Active Substance: QUETIAPINE
     Indication: BIPOLAR DISORDER
     Route: 048
  2. SODIUM VALPROATE (SODIUM VALPROATE) [Concomitant]
     Active Substance: VALPROATE SODIUM

REACTIONS (11)
  - Confusional state [None]
  - Depression [None]
  - Speech disorder [None]
  - Poor quality sleep [None]
  - Alcohol poisoning [None]
  - Mania [None]
  - Sudden onset of sleep [None]
  - Gait disturbance [None]
  - Vision blurred [None]
  - Sleep phase rhythm disturbance [None]
  - Somnolence [None]
